FAERS Safety Report 4403595-7 (Version None)
Quarter: 2004Q3

REPORT INFORMATION
  Report Type: 
  Country: None (occurrence: None)
  Receive Date: 20040721
  Receipt Date: 20040713
  Transmission Date: 20050211
  Serious: Yes (Other)
  Sender: FDA-Public Use
  Company Number: IT-GLAXOSMITHKLINE-B0339445A

PATIENT
  Age: 79 Year
  Sex: Female

DRUGS (5)
  1. SEREUPIN [Suspect]
     Indication: EMOTIONAL DISORDER
     Dosage: 20MG PER DAY
     Route: 048
     Dates: start: 20030403, end: 20040615
  2. ATENOLOL [Concomitant]
     Route: 048
     Dates: start: 20040102, end: 20040713
  3. CARBIDOPA AND LEVODOPA [Concomitant]
     Route: 048
     Dates: start: 20021125, end: 20040713
  4. LERCANIDIPINE [Concomitant]
     Route: 048
     Dates: start: 20030403, end: 20040713
  5. RAMIPRIL [Concomitant]
     Route: 048
     Dates: start: 20030403, end: 20040713

REACTIONS (4)
  - CONJUNCTIVAL HAEMORRHAGE [None]
  - HAEMORRHAGE SUBCUTANEOUS [None]
  - HAEMORRHAGIC DISORDER [None]
  - URINARY BLADDER HAEMORRHAGE [None]
